FAERS Safety Report 8063989-8 (Version None)
Quarter: 2012Q1

REPORT INFORMATION
  Report Type: 
  Country: None (occurrence: None)
  Receive Date: 20120123
  Receipt Date: 20120118
  Transmission Date: 20120608
  Serious: Yes (Other)
  Sender: FDA-Public Use
  Company Number: PHHY2011IE88746

PATIENT
  Sex: Female

DRUGS (2)
  1. ZOLEDRONOC ACID [Suspect]
     Indication: OSTEOPOROSIS
     Dosage: UNK UKN, UNK
     Route: 042
  2. CARBIMAZOLE [Concomitant]
     Indication: BASEDOW'S DISEASE
     Dosage: UNK UKN, UNK

REACTIONS (2)
  - BASEDOW'S DISEASE [None]
  - HYPERTHYROIDISM [None]
